FAERS Safety Report 13435942 (Version 1)
Quarter: 2017Q2

REPORT INFORMATION
  Report Type: Spontaneous
  Country: US (occurrence: US)
  Receive Date: 20170412
  Receipt Date: 20170412
  Transmission Date: 20170830
  Serious: No
  Sender: FDA-Public Use
  Company Number: None

PATIENT
  Age: 8 Year
  Sex: Male
  Weight: 27 kg

DRUGS (4)
  1. VITAMIN C [Concomitant]
     Active Substance: ASCORBIC ACID
  2. TYLENOL [Concomitant]
     Active Substance: ACETAMINOPHEN
  3. MONTELUKAST [Suspect]
     Active Substance: MONTELUKAST SODIUM
     Indication: ASTHMA
     Dosage: ?          QUANTITY:1 TABLET(S);?
     Route: 048
     Dates: start: 20170403, end: 20170411
  4. PROAIR HFA [Concomitant]
     Active Substance: ALBUTEROL SULFATE

REACTIONS (12)
  - Pyrexia [None]
  - Ear pain [None]
  - Dyspepsia [None]
  - Dry mouth [None]
  - Respiratory rate increased [None]
  - Anxiety [None]
  - Tremor [None]
  - Toothache [None]
  - Nausea [None]
  - Vomiting [None]
  - Nightmare [None]
  - Pain in extremity [None]

NARRATIVE: CASE EVENT DATE: 20170408
